FAERS Safety Report 8764048 (Version 1)
Quarter: 2012Q4

REPORT INFORMATION
  Report Type: Spontaneous
  Country: US (occurrence: None)
  Receive Date: 20120828
  Receipt Date: 20120828
  Transmission Date: 20130627
  Serious: Yes (Death, Other)
  Sender: FDA-Public Use
  Company Number: US-2012-11306

PATIENT
  Age: 80 Year
  Sex: Female

DRUGS (1)
  1. SAMSCA [Suspect]
     Indication: HYPONATREMIA

REACTIONS (1)
  - Drug ineffective [None]
